FAERS Safety Report 9314370 (Version 1)
Quarter: 2013Q2

REPORT INFORMATION
  Report Type: Spontaneous
  Country: US (occurrence: US)
  Receive Date: 20130529
  Receipt Date: 20130529
  Transmission Date: 20140414
  Serious: No
  Sender: FDA-Public Use
  Company Number: US-BAYER-2013-065942

PATIENT
  Age: 17 Year
  Sex: Female

DRUGS (2)
  1. BEYAZ [Suspect]
     Indication: CONTRACEPTION
     Dosage: 3MG/ 0.02MG/ 0.451MG AND 0.451
     Route: 048
     Dates: start: 20130517
  2. BEYAZ [Suspect]
     Indication: ACNE

REACTIONS (1)
  - Menorrhagia [None]
